FAERS Safety Report 4959751-2 (Version None)
Quarter: 2006Q1

REPORT INFORMATION
  Report Type: 
  Country: None (occurrence: None)
  Receive Date: 20060324
  Receipt Date: 20060311
  Transmission Date: 20060701
  Serious: Yes (Death, Life-Threatening, Other)
  Sender: FDA-Public Use
  Company Number: MC200600206

PATIENT
  Age: 70 Year
  Sex: Male

DRUGS (3)
  1. ANGIOMAX [Suspect]
     Dosage: SEE IMAGE
     Dates: start: 20060310, end: 20060310
  2. ANGIOMAX [Suspect]
     Dosage: SEE IMAGE
     Dates: start: 20060310
  3. NITROGLYCERIN ^A.L.^ (GLYCERYL TRINITRATE) [Concomitant]

REACTIONS (3)
  - BLOOD PRESSURE INCREASED [None]
  - CARDIAC PROCEDURE COMPLICATION [None]
  - CEREBROVASCULAR ACCIDENT [None]
